APPROVED DRUG PRODUCT: DACARBAZINE
Active Ingredient: DACARBAZINE
Strength: 500MG/VIAL
Dosage Form/Route: INJECTABLE;INJECTION
Application: A075259 | Product #001 | TE Code: AP
Applicant: MEITHEAL PHARMACEUTICALS INC
Approved: Sep 22, 2000 | RLD: No | RS: Yes | Type: RX